FAERS Safety Report 14052660 (Version 1)
Quarter: 2017Q4

REPORT INFORMATION
  Report Type: Spontaneous
  Country: FR (occurrence: FR)
  Receive Date: 20171006
  Receipt Date: 20171006
  Transmission Date: 20180321
  Serious: Yes (Other)
  Sender: FDA-Public Use
  Company Number: FR-SA-2017SA191226

PATIENT
  Age: 80 Year
  Sex: Male

DRUGS (6)
  1. ATENOL [Concomitant]
     Active Substance: ATENOLOL
  2. TAHOR [Concomitant]
     Active Substance: ATORVASTATIN CALCIUM
  3. RIFADINE [Suspect]
     Active Substance: RIFAMPIN
     Indication: DIABETIC FOOT
     Route: 048
     Dates: start: 20170911, end: 20170913
  4. TAVANIC [Suspect]
     Active Substance: LEVOFLOXACIN
     Indication: DIABETIC FOOT
     Route: 048
     Dates: start: 20170908, end: 20170913
  5. CORDARONE [Concomitant]
     Active Substance: AMIODARONE HYDROCHLORIDE
  6. KARDEGIC [Concomitant]
     Active Substance: ASPIRIN DL-LYSINE

REACTIONS (1)
  - Hypoglycaemia [Recovered/Resolved]

NARRATIVE: CASE EVENT DATE: 20170912
